FAERS Safety Report 10636014 (Version 2)
Quarter: 2015Q1

REPORT INFORMATION
  Report Type: Report from Study
  Country: BR (occurrence: BR)
  Receive Date: 20141205
  Receipt Date: 20150217
  Transmission Date: 20150720
  Serious: Yes (Hospitalization, Disabling)
  Sender: FDA-Public Use
  Company Number: BR-ABBVIE-14P-020-1316552-00

PATIENT
  Sex: Male
  Weight: 54 kg

DRUGS (4)
  1. DEPAKOTE [Suspect]
     Active Substance: DIVALPROEX SODIUM
     Indication: SEIZURE
     Dosage: IN THE MORNING AND AT NIGHT: DAILY DOSE:1000MG
     Route: 048
  2. DEPAKOTE [Suspect]
     Active Substance: DIVALPROEX SODIUM
     Indication: HYDROCEPHALUS
     Route: 048
  3. DEPAKOTE [Suspect]
     Active Substance: DIVALPROEX SODIUM
     Indication: NERVOUSNESS
     Route: 048
  4. OLCADIL [Concomitant]
     Active Substance: CLOXAZOLAM
     Indication: AGGRESSION
     Dosage: 2 TABLETS
     Route: 048

REACTIONS (4)
  - Fall [Recovered/Resolved]
  - Femur fracture [Recovered/Resolved]
  - Laboratory test abnormal [Recovered/Resolved]
  - Tremor [Recovered/Resolved]
